FAERS Safety Report 8785162 (Version 1)
Quarter: 2012Q4

REPORT INFORMATION
  Report Type: 
  Country: US (occurrence: US)
  Receive Date: 20120914
  Receipt Date: 20120914
  Transmission Date: 20130627
  Serious: Yes (Other)
  Sender: FDA-Public Use
  Company Number: US-VERTEX PHARMACEUTICAL INC.-AE-2012-011634

PATIENT

DRUGS (9)
  1. VX-950 [Suspect]
     Indication: HEPATITIS C
     Dosage: 750 mg, tid
     Route: 048
     Dates: start: 20120803
  2. RIBAVIRIN [Concomitant]
     Indication: HEPATITIS C
     Dosage: 400 mg, bid
     Route: 048
     Dates: start: 20120803
  3. PEGASYS [Concomitant]
     Indication: HEPATITIS C
     Dosage: 180 UNK, UNK
     Route: 058
     Dates: start: 20120803
  4. ANTIDEPRESSANTS [Concomitant]
     Indication: DEPRESSION
  5. LANTUS [Concomitant]
     Indication: DIABETES MELLITUS
     Dosage: 30 ut, qd
     Route: 058
     Dates: start: 20120803
  6. METFORMIN [Concomitant]
     Indication: DIABETES MELLITUS
     Dosage: UNK
     Dates: end: 20120803
  7. NOVOLIN [Concomitant]
     Indication: DIABETES MELLITUS
     Dosage: 30 ut, qd
  8. CYMBALTA [Concomitant]
     Indication: DEPRESSION
     Dosage: 90 mg, qd
     Route: 048
  9. BABY ASPIRIN [Concomitant]
     Dosage: 81 mg, qd

REACTIONS (12)
  - Myocardial infarction [Not Recovered/Not Resolved]
  - Memory impairment [Not Recovered/Not Resolved]
  - Influenza like illness [Not Recovered/Not Resolved]
  - Heart rate increased [Not Recovered/Not Resolved]
  - Headache [Not Recovered/Not Resolved]
  - Initial insomnia [Not Recovered/Not Resolved]
  - Constipation [Recovered/Resolved]
  - Decreased appetite [Not Recovered/Not Resolved]
  - Asthenia [Not Recovered/Not Resolved]
  - Rash pruritic [Recovered/Resolved]
  - Vomiting [Not Recovered/Not Resolved]
  - Nausea [Not Recovered/Not Resolved]
